FAERS Safety Report 24847222 (Version 2)
Quarter: 2025Q1

REPORT INFORMATION
  Report Type: Other
  Country: US (occurrence: US)
  Receive Date: 20250116
  Receipt Date: 20250124
  Transmission Date: 20250409
  Serious: No
  Sender: TRAVERE THERAPEUTICS
  Company Number: US-TRAVERE-2024TVT01314

PATIENT
  Sex: Male

DRUGS (2)
  1. FILSPARI [Suspect]
     Active Substance: SPARSENTAN
     Indication: IgA nephropathy
     Route: 048
     Dates: start: 20241122
  2. FILSPARI [Suspect]
     Active Substance: SPARSENTAN
     Dosage: BREAKING THE 400MG DOSE IN HALF
     Route: 048
     Dates: start: 202411

REACTIONS (3)
  - Drug dose titration not performed [Unknown]
  - Alopecia [Unknown]
  - Wrong technique in product usage process [Unknown]
